FAERS Safety Report 10036482 (Version 3)
Quarter: 2014Q2

REPORT INFORMATION
  Report Type: Report from Study
  Country: AU (occurrence: AU)
  Receive Date: 20140326
  Receipt Date: 20140508
  Transmission Date: 20141212
  Serious: Yes (Hospitalization)
  Sender: FDA-Public Use
  Company Number: AU-ROCHE-1209213

PATIENT
  Age: 62 Year
  Sex: Female
  Weight: 77 kg

DRUGS (7)
  1. OBINUTUZUMAB [Suspect]
     Indication: NON-HODGKIN^S LYMPHOMA UNSPECIFIED HISTOLOGY INDOLENT
     Dosage: LAST DOSE PRIOR TO SAE ON 26/MAR/2013 AT A DOSE OF 250ML (CONCENTRATION:1000MG/ML)
     Route: 042
     Dates: start: 20130321
  2. BENDAMUSTINE [Suspect]
     Indication: NON-HODGKIN^S LYMPHOMA UNSPECIFIED HISTOLOGY INDOLENT
     Dosage: LAST DOSE PRIOR TO SAE ON 22/MAR/2013 AT A DOSE OF 165.6MG
     Route: 042
     Dates: start: 20130321
  3. PRAMIN (AUSTRALIA) [Concomitant]
     Indication: NAUSEA
     Route: 065
     Dates: start: 20130322, end: 20130322
  4. PRAMIN (AUSTRALIA) [Concomitant]
     Indication: VIRAL INFECTION
     Route: 065
     Dates: start: 20130329, end: 20140402
  5. ALLOPURINOL [Concomitant]
     Route: 065
     Dates: start: 20130320, end: 20130328
  6. CALTRATE [Concomitant]
  7. ENOXAPARIN [Concomitant]
     Indication: THROMBOSIS PROPHYLAXIS
     Route: 065
     Dates: start: 20130320, end: 20130321

REACTIONS (1)
  - Febrile neutropenia [Recovered/Resolved]
